FAERS Safety Report 9175765 (Version 1)
Quarter: 2013Q1

REPORT INFORMATION
  Report Type: Spontaneous
  Country: DE (occurrence: DE)
  Receive Date: 20130320
  Receipt Date: 20130320
  Transmission Date: 20140127
  Serious: Yes (Life-Threatening, Hospitalization)
  Sender: FDA-Public Use
  Company Number: DE-MYLANLABS-2013S1005276

PATIENT
  Age: 37 Year
  Sex: Male
  Weight: 120 kg

DRUGS (1)
  1. CLARITHROMYCIN [Suspect]
     Indication: NASOPHARYNGITIS

REACTIONS (10)
  - Amnesia [Not Recovered/Not Resolved]
  - Apathy [Not Recovered/Not Resolved]
  - Aphasia [Not Recovered/Not Resolved]
  - Confusional state [Not Recovered/Not Resolved]
  - Depersonalisation [Not Recovered/Not Resolved]
  - Disorientation [Not Recovered/Not Resolved]
  - Hallucination [Not Recovered/Not Resolved]
  - Hypokinesia [Not Recovered/Not Resolved]
  - Mental impairment [Not Recovered/Not Resolved]
  - Psychotic disorder [Not Recovered/Not Resolved]
